FAERS Safety Report 4408757-0 (Version None)
Quarter: 2004Q3

REPORT INFORMATION
  Report Type: 
  Country: None (occurrence: None)
  Receive Date: 20040727
  Receipt Date: 20040719
  Transmission Date: 20050211
  Serious: Yes (Life-Threatening, Disabling)
  Sender: FDA-Public Use
  Company Number: PHFR2004GB02832

PATIENT
  Age: 16 Year
  Sex: Female

DRUGS (9)
  1. NORETHISTERONE ACETATE [Suspect]
     Dosage: 5MG/DAY
     Route: 048
     Dates: start: 20040606, end: 20040616
  2. IFOSFAMIDE [Suspect]
     Indication: BONE SARCOMA
     Dosage: 4G/DAY
     Route: 042
     Dates: start: 20040524
  3. GRANISETRON [Concomitant]
     Indication: VOMITING
     Dosage: 3 MG, BID
     Route: 042
     Dates: start: 20040524, end: 20040527
  4. DEXAMETHASONE [Concomitant]
     Indication: VOMITING
     Route: 042
     Dates: start: 20040524, end: 20040527
  5. ETOPOSIDE [Concomitant]
     Indication: BONE SARCOMA
     Dosage: 240MG/DAY
     Route: 042
     Dates: start: 20040524
  6. MESNA [Concomitant]
     Indication: PROPHYLAXIS
     Route: 042
     Dates: start: 20040524, end: 20040527
  7. ACYCLOVIR [Concomitant]
     Indication: HERPES VIRUS INFECTION
     Route: 042
     Dates: start: 20040611, end: 20040623
  8. METHOTREXATE [Concomitant]
     Indication: BONE SARCOMA
     Dosage: 12800MG/DAY
     Route: 042
     Dates: start: 20040609, end: 20040610
  9. FOLINIC ACID [Concomitant]
     Indication: FOLATE DEFICIENCY
     Route: 042
     Dates: start: 20040610, end: 20040613

REACTIONS (5)
  - DROOLING [None]
  - DYSPHAGIA [None]
  - FACIAL PARESIS [None]
  - SPEECH DISORDER [None]
  - TRANSIENT ISCHAEMIC ATTACK [None]
